FAERS Safety Report 13069419 (Version 1)
Quarter: 2016Q4

REPORT INFORMATION
  Report Type: Spontaneous
  Country: GH (occurrence: GH)
  Receive Date: 20161228
  Receipt Date: 20161228
  Transmission Date: 20170207
  Serious: Yes (Disabling, Other)
  Sender: FDA-Public Use
  Company Number: GH-IMPAX LABORATORIES, INC-2016-IPXL-02425

PATIENT
  Age: 50 Year
  Sex: Female

DRUGS (8)
  1. XYLOCAINE [Suspect]
     Active Substance: LIDOCAINE HYDROCHLORIDE
     Indication: ANAESTHESIA
     Dosage: 5ML OF 2%
     Route: 056
  2. NIFEDIPINE. [Concomitant]
     Active Substance: NIFEDIPINE
     Indication: HYPERTENSION
     Dosage: 40 MG, DAILY
     Route: 048
  3. ADRENACLICK [Suspect]
     Active Substance: EPINEPHRINE
     Indication: CATARACT OPERATION
  4. GENTAMYCIN [Suspect]
     Active Substance: GENTAMICIN
     Indication: ENDOPHTHALMITIS
     Dosage: 20 MG IN 0.5 ML
     Route: 057
  5. XYLOCAINE [Suspect]
     Active Substance: LIDOCAINE HYDROCHLORIDE
     Indication: CATARACT OPERATION
  6. GENTAMYCIN [Suspect]
     Active Substance: GENTAMICIN
     Indication: PROPHYLAXIS
  7. DEXAMETHASONE. [Concomitant]
     Active Substance: DEXAMETHASONE
     Indication: PRODUCT USED FOR UNKNOWN INDICATION
     Dosage: 1MG IN 0.5ML
     Route: 057
  8. ADRENACLICK [Suspect]
     Active Substance: EPINEPHRINE
     Indication: ANAESTHESIA
     Dosage: 1 IN 100000; UNK
     Route: 056

REACTIONS (2)
  - Optic atrophy [Not Recovered/Not Resolved]
  - Blindness unilateral [Not Recovered/Not Resolved]
